FAERS Safety Report 7500315-4 (Version None)
Quarter: 2011Q2

REPORT INFORMATION
  Report Type: 
  Country: None (occurrence: None)
  Receive Date: 20110524
  Receipt Date: 20100427
  Transmission Date: 20111010
  Serious: No
  Sender: FDA-Public Use
  Company Number: US-NOVEN-ALL1-2010-02454

PATIENT

DRUGS (4)
  1. METHYLPHENIDATE [Concomitant]
     Dosage: 10 MG, 1X/DAY:QD
     Route: 048
     Dates: start: 20100101
  2. DAYTRANA [Suspect]
     Dosage: 30 MG, 1X/DAY:QD
     Route: 062
     Dates: start: 20091201
  3. SERTRALINE HYDROCHLORIDE [Concomitant]
     Dosage: 50 MG, 1X/DAY:QD
     Route: 048
     Dates: start: 20091001
  4. NEXIUM [Concomitant]
     Dosage: 20 MG, 1X/DAY:QD
     Route: 048
     Dates: start: 20100101

REACTIONS (3)
  - APPLICATION SITE IRRITATION [None]
  - APPLICATION SITE PRURITUS [None]
  - PRODUCT QUALITY ISSUE [None]
